FAERS Safety Report 4322249-9 (Version None)
Quarter: 2004Q1

REPORT INFORMATION
  Report Type: 
  Country: None (occurrence: None)
  Receive Date: 20040323
  Receipt Date: 20040310
  Transmission Date: 20041129
  Serious: Yes (Hospitalization)
  Sender: FDA-Public Use
  Company Number: WAES 0403ITA00019

PATIENT

DRUGS (3)
  1. ASPIRIN [Suspect]
     Indication: MIGRAINE WITHOUT AURA
  2. BUTALBITAL [Suspect]
     Indication: MIGRAINE WITHOUT AURA
  3. MAXALT [Suspect]
     Indication: MIGRAINE WITHOUT AURA
     Route: 048

REACTIONS (5)
  - ABNORMAL BEHAVIOUR [None]
  - ANXIETY [None]
  - DEPRESSION [None]
  - HEADACHE [None]
  - MEDICATION ERROR [None]
